FAERS Safety Report 11420344 (Version 3)
Quarter: 2015Q4

REPORT INFORMATION
  Report Type: Spontaneous
  Country: US (occurrence: US)
  Receive Date: 20150826
  Receipt Date: 20151013
  Transmission Date: 20160304
  Serious: No
  Sender: FDA-Public Use
  Company Number: CHPA2015US009891

PATIENT
  Age: 87 Year
  Sex: Male

DRUGS (5)
  1. VOLTAREN [Suspect]
     Active Substance: DICLOFENAC SODIUM
     Indication: ARTHRITIS
     Dosage: 4 G, QID
     Route: 061
     Dates: start: 20150818, end: 20150820
  2. PENNSAID [Concomitant]
     Active Substance: DICLOFENAC SODIUM
     Indication: PRODUCT USED FOR UNKNOWN INDICATION
     Dosage: UNK, BID
     Route: 065
     Dates: start: 20150824
  3. LASIX [Concomitant]
     Active Substance: FUROSEMIDE
     Dosage: 2 DF, QD
     Route: 065
  4. VOLTAREN [Suspect]
     Active Substance: DICLOFENAC SODIUM
     Dosage: 4 G, QID
     Route: 061
     Dates: start: 20150812, end: 20150818
  5. LASIX [Concomitant]
     Active Substance: FUROSEMIDE
     Indication: PRODUCT USED FOR UNKNOWN INDICATION
     Dosage: 1 DF, QD
     Route: 065

REACTIONS (10)
  - Hyperhidrosis [Unknown]
  - Lacrimation increased [Recovered/Resolved]
  - Drug administered at inappropriate site [Unknown]
  - Nasal discomfort [Recovered/Resolved]
  - Rhinorrhoea [Recovered/Resolved]
  - Application site rash [Recovering/Resolving]
  - Accidental exposure to product [Unknown]
  - Poor quality sleep [Unknown]
  - Peripheral swelling [Recovered/Resolved]
  - Feeling hot [Unknown]

NARRATIVE: CASE EVENT DATE: 201508
